FAERS Safety Report 6278537-2 (Version None)
Quarter: 2009Q3

REPORT INFORMATION
  Report Type: 
  Country: None (occurrence: None)
  Receive Date: 20090722
  Receipt Date: 20080718
  Transmission Date: 20100115
  Serious: No
  Sender: FDA-Public Use
  Company Number: US-BAUSCH-2008BL003155

PATIENT
  Age: 18 Year
  Sex: Male
  Weight: 63 kg

DRUGS (2)
  1. OPCON-A [Suspect]
     Indication: EYE PRURITUS
     Route: 047
     Dates: start: 20080718, end: 20080718
  2. OPCON-A [Suspect]
     Indication: FOREIGN BODY SENSATION IN EYES
     Route: 047
     Dates: start: 20080718, end: 20080718

REACTIONS (3)
  - DRUG ADMINISTRATION ERROR [None]
  - DRUG INEFFECTIVE FOR UNAPPROVED INDICATION [None]
  - MYDRIASIS [None]
